FAERS Safety Report 21346599 (Version 3)
Quarter: 2022Q3

REPORT INFORMATION
  Report Type: Spontaneous
  Country: US (occurrence: US)
  Receive Date: 20220917
  Receipt Date: 20220924
  Transmission Date: 20221026
  Serious: No
  Sender: FDA-Public Use
  Company Number: US-JNJFOC-20220924416

PATIENT
  Age: 61 Year
  Sex: Female
  Weight: 200 kg

DRUGS (2)
  1. SIMPONI [Suspect]
     Active Substance: GOLIMUMAB
     Indication: Ankylosing spondylitis
     Dosage: STRENGTH: 50.00 MG / 0.50 ML
     Route: 058
  2. SIMPONI [Suspect]
     Active Substance: GOLIMUMAB
     Indication: Colitis ulcerative

REACTIONS (5)
  - Drug delivery system malfunction [Unknown]
  - Incorrect dose administered by product [Unknown]
  - Device deployment issue [Unknown]
  - Underdose [Unknown]
  - Needle issue [Unknown]
